FAERS Safety Report 5762937-0 (Version None)
Quarter: 2008Q2

REPORT INFORMATION
  Report Type: 
  Country: None (occurrence: None)
  Receive Date: 20080609
  Receipt Date: 20080527
  Transmission Date: 20081010
  Serious: Yes (Hospitalization, Disabling)
  Sender: FDA-Public Use
  Company Number: GB-ROCHE-543009

PATIENT
  Sex: Male
  Weight: 89 kg

DRUGS (9)
  1. CAPECITABINE [Suspect]
     Dosage: RECENT DOSE ON 21 JAN 2008. DOSAGE REGIMEN: 'SPLIT DOSE DAILY'.
     Route: 048
     Dates: start: 20080114, end: 20080120
  2. CISPLATIN [Suspect]
     Dosage: RECENT DOSE ON 14 JAN 2008.
     Route: 042
     Dates: start: 20080114, end: 20080114
  3. EPIRUBICIN [Concomitant]
     Dosage: RECENT DOSE ON 14 JAN 2008. FREQUENCY '3/52LY'.
     Route: 042
     Dates: start: 20080114, end: 20080114
  4. OMEPRAZOLE [Concomitant]
     Route: 048
     Dates: start: 20080114
  5. DEXAMETHASONE TAB [Concomitant]
     Indication: ANTIEMETIC SUPPORTIVE CARE
     Route: 048
     Dates: start: 20080114, end: 20080117
  6. DOMPERIDONE [Concomitant]
     Indication: ANTIEMETIC SUPPORTIVE CARE
     Route: 048
     Dates: start: 20080114, end: 20080117
  7. CHLORPROMAZINE [Concomitant]
     Route: 048
     Dates: start: 20080116, end: 20080120
  8. CODEINE SUL TAB [Concomitant]
     Route: 048
     Dates: start: 20080120, end: 20080120
  9. GRANISETRON HCL [Concomitant]
     Indication: ANTIEMETIC SUPPORTIVE CARE
     Route: 048
     Dates: start: 20080114, end: 20080114

REACTIONS (2)
  - COMPARTMENT SYNDROME [None]
  - PERIPHERAL ISCHAEMIA [None]
